FAERS Safety Report 10243344 (Version 1)
Quarter: 2014Q2

REPORT INFORMATION
  Report Type: Spontaneous
  Country: US (occurrence: None)
  Receive Date: 20140616
  Receipt Date: 20140616
  Transmission Date: 20141212
  Serious: Yes (Life-Threatening, Hospitalization, Other)
  Sender: FDA-Public Use
  Company Number: 001748731A

PATIENT
  Age: 49 Year
  Sex: Female

DRUGS (1)
  1. SHEER COVER NOURISHING MOISTURIZER SPF 15 [Suspect]
     Dosage: ONCE
     Route: 023
     Dates: start: 20140328

REACTIONS (4)
  - Acne [None]
  - Dyspnoea [None]
  - Lip swelling [None]
  - Eye swelling [None]
